FAERS Safety Report 13745021 (Version 5)
Quarter: 2021Q2

REPORT INFORMATION
  Report Type: Spontaneous
  Country: US (occurrence: US)
  Receive Date: 20170712
  Receipt Date: 20210429
  Transmission Date: 20210716
  Serious: No
  Sender: FDA-Public Use
  Company Number: US-PFIZER INC-2017301265

PATIENT
  Age: 76 Year
  Sex: Male

DRUGS (10)
  1. GEMFIBROZIL. [Concomitant]
     Active Substance: GEMFIBROZIL
     Dosage: UNK
     Dates: start: 2014
  2. LISINOPRIL. [Concomitant]
     Active Substance: LISINOPRIL
     Dosage: UNK
     Dates: start: 1963
  3. METFORMIN [Concomitant]
     Active Substance: METFORMIN HYDROCHLORIDE
     Dosage: UNK
     Dates: start: 2004
  4. METOPROLOL. [Concomitant]
     Active Substance: METOPROLOL
     Dosage: UNK
     Dates: start: 2004
  5. LYRICA [Interacting]
     Active Substance: PREGABALIN
     Indication: DIABETIC NEUROPATHY
     Dosage: 200 MG
  6. OXYCODONE [Interacting]
     Active Substance: OXYCODONE
     Dosage: UNK
  7. POTASSIUM CHLORIDE. [Concomitant]
     Active Substance: POTASSIUM CHLORIDE
     Dosage: UNK
     Dates: start: 2004
  8. LYRICA [Suspect]
     Active Substance: PREGABALIN
     Indication: PAIN
     Dosage: 100 MG, 3X/DAY
     Dates: start: 201601
  9. AMLODIPINE [Concomitant]
     Active Substance: AMLODIPINE BESYLATE
     Dosage: UNK
     Dates: start: 2014
  10. OXYCOD APAP/ACETAMINOPHEN [Concomitant]
     Dosage: 10MG /325MG

REACTIONS (2)
  - Drug interaction [Unknown]
  - Drug ineffective [Unknown]

NARRATIVE: CASE EVENT DATE: 20170604
